FAERS Safety Report 7450411-5 (Version None)
Quarter: 2011Q2

REPORT INFORMATION
  Report Type: 
  Country: None (occurrence: None)
  Receive Date: 20110422
  Receipt Date: 20110408
  Transmission Date: 20111010
  Serious: Yes (Other)
  Sender: FDA-Public Use
  Company Number: 2011001790

PATIENT
  Age: 83 Year
  Sex: Female

DRUGS (3)
  1. TARCEVA [Suspect]
     Indication: LUNG ADENOCARCINOMA
     Dosage: 100 MG, 1 IN 1 D, ORAL
     Route: 048
     Dates: start: 20110221, end: 20110407
  2. CIPROFLOXACIN HCL [Suspect]
     Indication: TUMOUR ASSOCIATED FEVER
  3. LOXONIN (LOXOPROFEN SODIUM) [Suspect]
     Indication: TUMOUR ASSOCIATED FEVER

REACTIONS (1)
  - BLOOD CREATINE PHOSPHOKINASE INCREASED [None]
